FAERS Safety Report 22315832 (Version 1)
Quarter: 2023Q2

REPORT INFORMATION
  Report Type: Other
  Country: US (occurrence: None)
  Receive Date: 20230512
  Receipt Date: 20230512
  Transmission Date: 20230721
  Serious: Yes (Other)
  Sender: FDA-Public Use
  Company Number: US-ROCHE-3348794

PATIENT
  Age: 76 Year
  Sex: Female

DRUGS (3)
  1. ESBRIET [Suspect]
     Active Substance: PIRFENIDONE
     Indication: Idiopathic pulmonary fibrosis
     Dosage: TAKE 1 TABLET BY MOUTH IN THE MORNING AND TAKE 1 TABLET BY MOUTH IN THE EVENING AND TAKE 1 TABLET BY
     Route: 048
  2. ESBRIET [Suspect]
     Active Substance: PIRFENIDONE
     Indication: Pancreatic carcinoma
  3. ESBRIET [Suspect]
     Active Substance: PIRFENIDONE
     Indication: Diabetes mellitus

REACTIONS (2)
  - Pancreatic carcinoma [Unknown]
  - Diabetes mellitus [Unknown]
